FAERS Safety Report 5759587-9 (Version None)
Quarter: 2008Q2

REPORT INFORMATION
  Report Type: 
  Country: None (occurrence: None)
  Receive Date: 20080605
  Receipt Date: 20080527
  Transmission Date: 20081010
  Serious: Yes (Other)
  Sender: FDA-Public Use
  Company Number: GB-ASTRAZENECA-2008AC01361

PATIENT
  Age: 84 Year
  Sex: Female

DRUGS (3)
  1. COTENIDONE [Suspect]
     Route: 048
  2. ASPIRIN [Concomitant]
  3. LISINOPRIL [Concomitant]

REACTIONS (1)
  - MYASTHENIA GRAVIS [None]
